FAERS Safety Report 22184579 (Version 1)
Quarter: 2023Q2

REPORT INFORMATION
  Report Type: Spontaneous
  Country: US (occurrence: US)
  Receive Date: 20230407
  Receipt Date: 20230407
  Transmission Date: 20230721
  Serious: No
  Sender: FDA-Public Use
  Company Number: US-ABBVIE-4718050

PATIENT
  Age: 62 Year
  Sex: Male

DRUGS (1)
  1. RINVOQ [Suspect]
     Active Substance: UPADACITINIB
     Indication: Rheumatoid arthritis
     Route: 048
     Dates: start: 20230326, end: 20230328

REACTIONS (9)
  - Hypertension [Unknown]
  - Weight decreased [Unknown]
  - Feeling abnormal [Unknown]
  - Nausea [Unknown]
  - Urticaria [Unknown]
  - Influenza [Unknown]
  - Abdominal pain upper [Unknown]
  - Nerve compression [Unknown]
  - Gastric disorder [Unknown]

NARRATIVE: CASE EVENT DATE: 20230326
